FAERS Safety Report 9966021 (Version 1)
Quarter: 2014Q1

REPORT INFORMATION
  Report Type: Spontaneous
  Country: US (occurrence: US)
  Receive Date: 20140305
  Receipt Date: 20140305
  Transmission Date: 20141002
  Serious: No
  Sender: FDA-Public Use
  Company Number: US-ABBVIE-13P-163-1127342-00

PATIENT
  Sex: Female
  Weight: 48.58 kg

DRUGS (7)
  1. HUMIRA [Suspect]
     Indication: CROHN^S DISEASE
  2. PENTASA [Concomitant]
     Indication: CROHN^S DISEASE
  3. CENTRUM [Concomitant]
     Indication: VITAMIN SUPPLEMENTATION
  4. CITRACAL [Concomitant]
     Indication: MINERAL SUPPLEMENTATION
  5. METHOTREXATE [Concomitant]
     Indication: CROHN^S DISEASE
  6. FOLIC ACID [Concomitant]
     Indication: VITAMIN SUPPLEMENTATION
  7. IRON [Concomitant]
     Indication: IRON DEFICIENCY

REACTIONS (3)
  - Injection site pain [Not Recovered/Not Resolved]
  - Injection site swelling [Recovered/Resolved]
  - Injection site erythema [Recovering/Resolving]
